FAERS Safety Report 6887863-5 (Version None)
Quarter: 2010Q3

REPORT INFORMATION
  Report Type: 
  Country: None (occurrence: None)
  Receive Date: 20100708
  Receipt Date: 20100428
  Transmission Date: 20110219
  Serious: Yes (Other)
  Sender: FDA-Public Use
  Company Number: 2010025563

PATIENT
  Age: 78 Year
  Sex: Male
  Weight: 70.3 kg

DRUGS (22)
  1. CHANTIX [Suspect]
     Indication: SMOKING CESSATION THERAPY
     Dosage: 0.5 MG, 1X/DAY, ORAL
     Route: 048
     Dates: start: 20091101, end: 20091101
  2. PLAVIX [Concomitant]
  3. IMDUR [Concomitant]
  4. CYMBALTA [Concomitant]
  5. LISINOPRIL [Concomitant]
  6. AMLODIPINE BESYLATE [Concomitant]
  7. AMLODIPINE BESYLATE [Concomitant]
  8. SIMVASTATIN [Concomitant]
  9. SIMVASTATIN [Concomitant]
  10. TEMAZEPAM [Concomitant]
  11. TEMAZEPAM [Concomitant]
  12. RANITIDINE HYDROCHLORIDE [Concomitant]
  13. LORTAB [Concomitant]
  14. DETROL LA [Concomitant]
  15. FERROUS GLUCONATE (FERROUS GLUCONATE) [Concomitant]
  16. FERROUS GLUCONATE (FERROUS GLUCONATE) [Concomitant]
  17. RANITIDINE [Concomitant]
  18. EXTRA STRENGTH TYLENOL [Suspect]
  19. TRAMADOL HCL [Concomitant]
  20. GLUCOSAMINE SULFATE (GLUCOSAMINE SULFATE) [Concomitant]
  21. VITAMIN E [Concomitant]
  22. ASCORBIC ACID [Concomitant]

REACTIONS (2)
  - ANAEMIA [None]
  - MYOCARDIAL INFARCTION [None]
